FAERS Safety Report 11199280 (Version 1)
Quarter: 2015Q2

REPORT INFORMATION
  Report Type: Spontaneous
  Country: US (occurrence: None)
  Receive Date: 20150616
  Receipt Date: 20150616
  Transmission Date: 20150821
  Serious: Yes (Life-Threatening, Disabling)
  Sender: FDA-Public Use
  Company Number: None

PATIENT
  Age: 33 Year
  Sex: Female
  Weight: 61.24 kg

DRUGS (5)
  1. GLUCOSAMINE [Concomitant]
     Active Substance: GLUCOSAMINE
  2. MULTIHANCE [Suspect]
     Active Substance: GADOBENATE DIMEGLUMINE
     Indication: IMAGING PROCEDURE
     Route: 042
     Dates: start: 20150209, end: 20150209
  3. COLLAGEN [Concomitant]
     Active Substance: COLLAGEN
  4. MAGNESIUM [Concomitant]
     Active Substance: MAGNESIUM
  5. B12 (METHYLCOBALAMIN) [Concomitant]

REACTIONS (20)
  - Skin hyperpigmentation [None]
  - Dyskinesia [None]
  - Electrocardiogram abnormal [None]
  - QRS axis abnormal [None]
  - Tachycardia [None]
  - Night sweats [None]
  - Dysgeusia [None]
  - Blood pressure increased [None]
  - Vision blurred [None]
  - Photophobia [None]
  - Dysuria [None]
  - Muscle spasms [None]
  - Dyspnoea [None]
  - Panic attack [None]
  - Pruritus [None]
  - Ischaemia [None]
  - Bladder spasm [None]
  - Erythema [None]
  - Skin disorder [None]
  - Uterine spasm [None]

NARRATIVE: CASE EVENT DATE: 20150209
